FAERS Safety Report 26104820 (Version 1)
Quarter: 2025Q4

REPORT INFORMATION
  Report Type: Spontaneous
  Country: EU (occurrence: EU)
  Receive Date: 20251130
  Receipt Date: 20251130
  Transmission Date: 20260118
  Serious: Yes (Life-Threatening, Hospitalization, Other)
  Sender: ALKEM
  Company Number: None

PATIENT
  Age: 63 Year
  Sex: Female

DRUGS (7)
  1. MYCOPHENOLATE MOFETIL [Suspect]
     Active Substance: MYCOPHENOLATE MOFETIL
     Indication: Immunosuppressant drug therapy
     Dosage: UNK
     Route: 065
  2. TACROLIMUS [Suspect]
     Active Substance: TACROLIMUS
     Indication: Dermatomyositis
     Dosage: UNK
     Route: 061
  3. METHYLPREDNISOLONE [Suspect]
     Active Substance: METHYLPREDNISOLONE
     Indication: Immunosuppressant drug therapy
     Dosage: UNK (PULSE-DOSE)
     Route: 065
  4. CYCLOPHOSPHAMIDE [Suspect]
     Active Substance: CYCLOPHOSPHAMIDE
     Indication: Immunosuppressant drug therapy
     Dosage: UNK
     Route: 065
  5. DEFLAZACORT [Suspect]
     Active Substance: DEFLAZACORT
     Indication: Immunosuppressant drug therapy
     Dosage: 60 MILLIGRAM, QD
     Route: 065
  6. DEFLAZACORT [Suspect]
     Active Substance: DEFLAZACORT
     Dosage: 40 MILLIGRAM, QD
     Route: 065
  7. RITUXIMAB [Suspect]
     Active Substance: RITUXIMAB
     Indication: Immunosuppressant drug therapy
     Dosage: 1 GRAM, (ADMINISTERED TWICE, EVERY 15 DAY)
     Route: 065

REACTIONS (4)
  - Fungal infection [Unknown]
  - Hypersensitivity [Unknown]
  - Laryngitis [Unknown]
  - Influenza [Unknown]
